FAERS Safety Report 6893687-5 (Version None)
Quarter: 2010Q3

REPORT INFORMATION
  Report Type: 
  Country: None (occurrence: None)
  Receive Date: 20100731
  Receipt Date: 20091203
  Transmission Date: 20110219
  Serious: Yes (Hospitalization, Other)
  Sender: FDA-Public Use
  Company Number: US-PFIZER INC-2009237082

PATIENT
  Sex: Male
  Weight: 79.365 kg

DRUGS (2)
  1. NEURONTIN [Suspect]
     Indication: BIPOLAR DISORDER
     Dosage: UNK
  2. KLONOPIN [Suspect]
     Dosage: UNK

REACTIONS (5)
  - ALCOHOL ABUSE [None]
  - ANXIETY [None]
  - DRUG INEFFECTIVE FOR UNAPPROVED INDICATION [None]
  - HOSTILITY [None]
  - SUICIDAL IDEATION [None]
